FAERS Safety Report 16201684 (Version 1)
Quarter: 2019Q2

REPORT INFORMATION
  Report Type: Spontaneous
  Country: US (occurrence: US)
  Receive Date: 20190415
  Receipt Date: 20190415
  Transmission Date: 20190711
  Serious: Yes (Hospitalization)
  Sender: FDA-Public Use
  Company Number: None

PATIENT
  Age: 66 Year
  Weight: 76.4 kg

DRUGS (1)
  1. PEMBROLIZUMAB. [Suspect]
     Active Substance: PEMBROLIZUMAB
     Indication: LUNG ADENOCARCINOMA
     Dosage: ?          OTHER FREQUENCY:EVERY 4 WEEKS;?
     Route: 040
     Dates: start: 20170906

REACTIONS (1)
  - Nephritis [None]

NARRATIVE: CASE EVENT DATE: 20190404
